FAERS Safety Report 4667861-2 (Version None)
Quarter: 2005Q2

REPORT INFORMATION
  Report Type: 
  Country: None (occurrence: None)
  Receive Date: 20050520
  Receipt Date: 20050110
  Transmission Date: 20051028
  Serious: Yes (Death, Life-Threatening, Hospitalization)
  Sender: FDA-Public Use
  Company Number: US-SANOFI-SYNTHELABO-F01200500027

PATIENT
  Sex: Male

DRUGS (4)
  1. OXALIPLATIN [Suspect]
     Indication: COLORECTAL CANCER METASTATIC
     Route: 042
     Dates: start: 20030121, end: 20030121
  2. FLUOROURACIL [Suspect]
     Dosage: 400 MG/M2 IV BOLUS AND 600 MG/M2 IV CONTINUOUS INFUSION, Q2W
     Route: 042
     Dates: start: 20030121, end: 20030121
  3. LEUCOVORIN CALCIUM [Suspect]
     Route: 042
     Dates: start: 20030121, end: 20030121
  4. BEVACIZUMAB [Suspect]
     Route: 042
     Dates: start: 20030121, end: 20030121

REACTIONS (11)
  - ARRHYTHMIA SUPRAVENTRICULAR [None]
  - ASPIRATION [None]
  - ATRIAL FIBRILLATION [None]
  - DISEASE PROGRESSION [None]
  - DYSPNOEA [None]
  - HYPOTENSION [None]
  - LOSS OF CONSCIOUSNESS [None]
  - MYOCARDIAL ISCHAEMIA [None]
  - NEUTROPHIL COUNT DECREASED [None]
  - PLEURAL EFFUSION [None]
  - TROPONIN INCREASED [None]
